FAERS Safety Report 14554849 (Version 1)
Quarter: 2018Q1

REPORT INFORMATION
  Report Type: Report from Study
  Country: TR (occurrence: TR)
  Receive Date: 20180220
  Receipt Date: 20180220
  Transmission Date: 20180509
  Serious: Yes (Death)
  Sender: FDA-Public Use
  Company Number: TR-SPECTRUM PHARMACEUTICALS, INC.-18-M-TR-00043

PATIENT
  Age: 31 Year
  Sex: Female

DRUGS (4)
  1. MARQIBO [Suspect]
     Active Substance: VINCRISTINE SULFATE
     Indication: ACUTE LYMPHOCYTIC LEUKAEMIA
     Dosage: 2.25 MG, ONCE WEEKLY
     Route: 042
     Dates: start: 20171030, end: 20171208
  2. URSACTIVE [Concomitant]
     Active Substance: URSODIOL
     Indication: HEPATITIS CHOLESTATIC
     Dosage: UNK UNK, TID
     Route: 048
     Dates: start: 20171113, end: 20171219
  3. MEROPENEM. [Concomitant]
     Active Substance: MEROPENEM
     Indication: FEBRILE NEUTROPENIA
     Dosage: 2 G, TID
     Route: 042
     Dates: start: 20171216, end: 20171220
  4. CANSIDAS [Concomitant]
     Indication: SYSTEMIC CANDIDA
     Dosage: 50 MG, QD
     Route: 042
     Dates: start: 20171110, end: 20171220

REACTIONS (4)
  - Septic shock [Fatal]
  - Candida infection [Fatal]
  - Device related infection [Fatal]
  - Febrile neutropenia [Fatal]

NARRATIVE: CASE EVENT DATE: 20171219
